FAERS Safety Report 7350634-X (Version None)
Quarter: 2011Q1

REPORT INFORMATION
  Report Type: 
  Country: None (occurrence: None)
  Receive Date: 20110314
  Receipt Date: 20100908
  Transmission Date: 20110831
  Serious: Yes (Hospitalization, Other)
  Sender: FDA-Public Use
  Company Number: US-BAYER-200937537NA

PATIENT
  Sex: Female
  Weight: 72.562 kg

DRUGS (4)
  1. YAZ [Suspect]
     Indication: PRODUCT USED FOR UNKNOWN INDICATION
  2. YASMIN [Suspect]
     Indication: CONTRACEPTION
     Dosage: UNK
     Dates: start: 20030101, end: 20050101
  3. ZITHROMAX [Concomitant]
     Indication: PNEUMONIA
  4. CIPROFLOXACIN [Concomitant]
     Dosage: UNK
     Dates: start: 20060818

REACTIONS (7)
  - CHOLELITHIASIS [None]
  - PAIN [None]
  - VOMITING [None]
  - NAUSEA [None]
  - GASTRIC ULCER [None]
  - CHOLECYSTITIS CHRONIC [None]
  - ABDOMINAL PAIN [None]
